FAERS Safety Report 21227742 (Version 5)
Quarter: 2023Q1

REPORT INFORMATION
  Report Type: Report from Study
  Country: US (occurrence: US)
  Receive Date: 20220818
  Receipt Date: 20230209
  Transmission Date: 20230417
  Serious: Yes (Hospitalization, Other)
  Sender: FDA-Public Use
  Company Number: US-INSMED-2022-02022-USAA

PATIENT
  Sex: Female

DRUGS (3)
  1. ARIKAYCE [Suspect]
     Active Substance: AMIKACIN
     Indication: Mycobacterium avium complex infection
     Dosage: 590 MILLIGRAM, QD
     Route: 055
     Dates: start: 20220718, end: 202208
  2. ARIKAYCE [Suspect]
     Active Substance: AMIKACIN
     Dosage: 590 MILLIGRAM, QD
     Route: 055
     Dates: start: 20220911, end: 20230202
  3. RIFAMPIN [Suspect]
     Active Substance: RIFAMPIN

REACTIONS (14)
  - Bronchiectasis [Unknown]
  - Haematochezia [Unknown]
  - Hospitalisation [Unknown]
  - Blood urine present [Unknown]
  - Sputum discoloured [Not Recovered/Not Resolved]
  - Sputum increased [Not Recovered/Not Resolved]
  - Productive cough [Unknown]
  - Aphonia [Recovering/Resolving]
  - Dysphonia [Unknown]
  - Drug hypersensitivity [Unknown]
  - Malaise [Recovered/Resolved]
  - Cough [Not Recovered/Not Resolved]
  - Therapy interrupted [Unknown]
  - Intentional dose omission [Unknown]

NARRATIVE: CASE EVENT DATE: 20220101
